FAERS Safety Report 6608524-3 (Version None)
Quarter: 2010Q1

REPORT INFORMATION
  Report Type: 
  Country: None (occurrence: None)
  Receive Date: 20100301
  Receipt Date: 20100224
  Transmission Date: 20100710
  Serious: Yes (Death)
  Sender: FDA-Public Use
  Company Number: GB-ASTRAZENECA-2005GB01914

PATIENT
  Age: 20582 Day
  Sex: Female

DRUGS (10)
  1. SEROQUEL [Suspect]
     Indication: BIPOLAR I DISORDER
     Route: 048
     Dates: start: 20040701, end: 20050520
  2. SEROQUEL [Suspect]
     Indication: PSYCHOTIC DISORDER
     Route: 048
     Dates: start: 20040701, end: 20050520
  3. SEROQUEL [Suspect]
     Dosage: GRADUALLY INCREASED UP TO 700MG IN TWO DIVIDED DOSES, EVERY DAY
     Route: 048
     Dates: start: 20040701
  4. SEROQUEL [Suspect]
     Dosage: GRADUALLY INCREASED UP TO 700MG IN TWO DIVIDED DOSES, EVERY DAY
     Route: 048
     Dates: start: 20040701
  5. SEROQUEL [Suspect]
     Dosage: 200AM AND 700NOC INCREASED UP TO 900MG TWO WEEK PRIOR TO DEATH(200MG MANE AND 700MG NOTCE),EVERY DAY
     Route: 048
     Dates: end: 20050520
  6. SEROQUEL [Suspect]
     Dosage: 200AM AND 700NOC INCREASED UP TO 900MG TWO WEEK PRIOR TO DEATH(200MG MANE AND 700MG NOTCE),EVERY DAY
     Route: 048
     Dates: end: 20050520
  7. CIPRAMIL [Suspect]
     Indication: DEPRESSION
     Route: 048
     Dates: start: 20050401, end: 20050520
  8. VALPROATE SODIUM [Suspect]
     Indication: BIPOLAR DISORDER
     Route: 048
     Dates: start: 20040801
  9. LAMOTRIGINE [Suspect]
     Indication: BIPOLAR I DISORDER
     Route: 048
     Dates: start: 20040901
  10. LISINOPRIL [Concomitant]
     Indication: HYPERTENSION
     Route: 048

REACTIONS (2)
  - ASPHYXIA [None]
  - COMPLETED SUICIDE [None]
